FAERS Safety Report 7885390-X (Version None)
Quarter: 2011Q4

REPORT INFORMATION
  Report Type: 
  Country: None (occurrence: None)
  Receive Date: 20111102
  Receipt Date: 20111028
  Transmission Date: 20120403
  Serious: Yes (Disabling)
  Sender: FDA-Public Use
  Company Number: ES-ABBOTT-11P-144-0868845-00

PATIENT
  Sex: Female

DRUGS (1)
  1. HUMIRA [Suspect]
     Indication: CROHN'S DISEASE

REACTIONS (4)
  - VISUAL ACUITY REDUCED [None]
  - STRABISMUS [None]
  - SQUAMOUS CELL CARCINOMA OF SKIN [None]
  - ALOPECIA [None]
